FAERS Safety Report 15243132 (Version 1)
Quarter: 2018Q3

REPORT INFORMATION
  Report Type: Spontaneous
  Country: TR (occurrence: TR)
  Receive Date: 20180806
  Receipt Date: 20180806
  Transmission Date: 20181010
  Serious: Yes (Life-Threatening)
  Sender: FDA-Public Use
  Company Number: TR-ROCHE-2159545

PATIENT
  Age: 50 Year
  Sex: Male
  Weight: 63 kg

DRUGS (2)
  1. COTELLIC [Suspect]
     Active Substance: COBIMETINIB
     Indication: METASTATIC MALIGNANT MELANOMA
     Dosage: 3 TABLETS IN THE AFTERNOON FOR 2 MONTHS
     Route: 048
     Dates: start: 20171120
  2. ZELBORAF [Suspect]
     Active Substance: VEMURAFENIB
     Indication: METASTATIC MALIGNANT MELANOMA
     Dosage: 4 TABLETS IN THE MORNING AND 4 TABLETS IN THE EVENING FOR 9 MONTHS
     Route: 048
     Dates: start: 20171120

REACTIONS (10)
  - Vision blurred [Recovered/Resolved with Sequelae]
  - Visual impairment [Recovered/Resolved with Sequelae]
  - Skin papilloma [Recovered/Resolved with Sequelae]
  - Alopecia [Recovered/Resolved with Sequelae]
  - Madarosis [Recovered/Resolved with Sequelae]
  - Skin discolouration [Recovered/Resolved with Sequelae]
  - Dysgeusia [Recovered/Resolved with Sequelae]
  - Photosensitivity reaction [Recovered/Resolved with Sequelae]
  - Xerophthalmia [Recovered/Resolved with Sequelae]
  - Unevaluable event [Recovered/Resolved with Sequelae]

NARRATIVE: CASE EVENT DATE: 20171120
